FAERS Safety Report 25283343 (Version 2)
Quarter: 2025Q2

REPORT INFORMATION
  Report Type: Spontaneous
  Country: US (occurrence: US)
  Receive Date: 20250508
  Receipt Date: 20250523
  Transmission Date: 20250716
  Serious: Yes (Life-Threatening, Hospitalization)
  Sender: PFIZER
  Company Number: US-PFIZER INC-202500094583

PATIENT
  Age: 74 Year
  Sex: Male
  Weight: 136.08 kg

DRUGS (4)
  1. VYNDAMAX [Suspect]
     Active Substance: TAFAMIDIS
     Indication: Cerebrovascular accident
     Dosage: 61 MG, 1X/DAY
     Dates: start: 20250104
  2. POTASSIUM [Concomitant]
     Active Substance: POTASSIUM
     Indication: Cerebrovascular accident
     Dosage: 1 DF, DAILY
  3. ROSUVASTATIN [Concomitant]
     Active Substance: ROSUVASTATIN
     Dosage: 1 DF, DAILY
  4. ENTRESTO [Concomitant]
     Active Substance: SACUBITRIL\VALSARTAN
     Dosage: 1 DF, DAILY

REACTIONS (3)
  - Cerebrovascular accident [Recovering/Resolving]
  - Brain fog [Recovering/Resolving]
  - Memory impairment [Recovering/Resolving]
